FAERS Safety Report 13317070 (Version 1)
Quarter: 2017Q1

REPORT INFORMATION
  Report Type: Spontaneous
  Country: BE (occurrence: BE)
  Receive Date: 20170310
  Receipt Date: 20170310
  Transmission Date: 20170428
  Serious: Yes (Hospitalization)
  Sender: FDA-Public Use
  Company Number: BE-ROCHE-1904000

PATIENT
  Sex: Female
  Weight: 55 kg

DRUGS (1)
  1. MABTHERA [Suspect]
     Active Substance: RITUXIMAB
     Indication: MANTLE CELL LYMPHOMA
     Route: 042
     Dates: start: 20161219

REACTIONS (9)
  - Pyrexia [Recovered/Resolved]
  - Hypotension [Recovered/Resolved]
  - Off label use [Unknown]
  - Chills [Recovered/Resolved]
  - Chills [Recovered/Resolved]
  - Inflammation [Recovered/Resolved]
  - Pyrexia [Recovered/Resolved]
  - Hypotension [Recovered/Resolved]
  - Inflammation [Recovered/Resolved]

NARRATIVE: CASE EVENT DATE: 20170116
